FAERS Safety Report 24062832 (Version 1)
Quarter: 2024Q3

REPORT INFORMATION
  Report Type: Spontaneous
  Country: FR (occurrence: FR)
  Receive Date: 20240709
  Receipt Date: 20240709
  Transmission Date: 20241017
  Serious: Yes (Hospitalization, Other)
  Sender: PFIZER
  Company Number: None

PATIENT
  Age: 1 Month
  Sex: Female
  Weight: 2.36 kg

DRUGS (8)
  1. ALDACTONE [Suspect]
     Active Substance: SPIRONOLACTONE
     Indication: Dilated cardiomyopathy
     Dosage: 50 MG, 1X/DAY
     Route: 064
     Dates: start: 20210824, end: 20210920
  2. ALDACTONE [Suspect]
     Active Substance: SPIRONOLACTONE
     Dosage: UNK
  3. ENTRESTO [Suspect]
     Active Substance: SACUBITRIL\VALSARTAN
     Indication: Dilated cardiomyopathy
     Dosage: 1 TABLET IN THE MORNING AND IN THE EVENING
     Route: 064
     Dates: start: 20210824, end: 20210920
  4. DAPAGLIFLOZIN [Suspect]
     Active Substance: DAPAGLIFLOZIN
     Indication: Dilated cardiomyopathy
     Dosage: 10 MG
     Route: 064
     Dates: start: 20210911, end: 20210920
  5. FUROSEMIDE [Suspect]
     Active Substance: FUROSEMIDE
     Indication: Dilated cardiomyopathy
     Dosage: 1 TABLET IN THE MORNING
     Route: 064
     Dates: start: 20210824, end: 20210920
  6. FUROSEMIDE [Suspect]
     Active Substance: FUROSEMIDE
     Dosage: 2 TABLET DAILY (40 MG)
     Route: 064
     Dates: start: 20210920, end: 20220427
  7. BISOPROLOL FUMARATE [Suspect]
     Active Substance: BISOPROLOL FUMARATE
     Indication: Dilated cardiomyopathy
     Dosage: 5 MG, 1X/DAY
     Route: 064
     Dates: start: 20210824, end: 20210920
  8. BISOPROLOL FUMARATE [Suspect]
     Active Substance: BISOPROLOL FUMARATE
     Dosage: FREQ:12 H;5MG IN THE MORNING AND IN TH EVENING
     Route: 064
     Dates: start: 20210920, end: 20220427

REACTIONS (3)
  - Patent ductus arteriosus [Unknown]
  - Left ventricular dysfunction [Unknown]
  - Maternal exposure during pregnancy [Recovered/Resolved]

NARRATIVE: CASE EVENT DATE: 20210824
